FAERS Safety Report 16874751 (Version 2)
Quarter: 2019Q4

REPORT INFORMATION
  Report Type: Spontaneous
  Country: US (occurrence: US)
  Receive Date: 20191001
  Receipt Date: 20191029
  Transmission Date: 20200122
  Serious: No
  Sender: FDA-Public Use
  Company Number: US-AMAG PHARMACEUTICALS, INC.-AMAG201904728

PATIENT
  Age: 82 Year
  Sex: Female
  Weight: 54.03 kg

DRUGS (2)
  1. LIDOCAINE. [Concomitant]
     Active Substance: LIDOCAINE
     Indication: VULVOVAGINAL PAIN
  2. INTRAROSA [Suspect]
     Active Substance: PRASTERONE
     Indication: VULVOVAGINAL PAIN
     Route: 067
     Dates: start: 20190828

REACTIONS (4)
  - Weight increased [Not Recovered/Not Resolved]
  - Off label use [Unknown]
  - Burning sensation [Not Recovered/Not Resolved]
  - Drug ineffective for unapproved indication [Unknown]

NARRATIVE: CASE EVENT DATE: 20190828
